FAERS Safety Report 4647621-9 (Version None)
Quarter: 2005Q2

REPORT INFORMATION
  Report Type: 
  Country: None (occurrence: None)
  Receive Date: 20050426
  Receipt Date: 20050413
  Transmission Date: 20051028
  Serious: Yes (Hospitalization)
  Sender: FDA-Public Use
  Company Number: MK200504-0174-1

PATIENT
  Age: 25 Year
  Sex: Female

DRUGS (1)
  1. BAROSPERSE ENEMA KT 454GM/16OZ BARIUM SULFATE [Suspect]
     Indication: ENEMA ADMINISTRATION
     Dosage: ONE TIME, PR
     Route: 054
     Dates: start: 19461031, end: 19461031

REACTIONS (21)
  - ABDOMINAL ADHESIONS [None]
  - ANGIOPATHY [None]
  - ATELECTASIS [None]
  - DIAPHRAGMATIC DISORDER [None]
  - ESCHERICHIA INFECTION [None]
  - INTESTINAL OBSTRUCTION [None]
  - JAUNDICE [None]
  - LIVER ABSCESS [None]
  - LUNG INFILTRATION [None]
  - MEDIASTINAL ABSCESS [None]
  - OVARIAN CYST [None]
  - POST PROCEDURAL COMPLICATION [None]
  - POST PROCEDURAL PAIN [None]
  - PYREXIA [None]
  - SPUTUM CULTURE POSITIVE [None]
  - STAPHYLOCOCCAL INFECTION [None]
  - STREPTOCOCCAL INFECTION [None]
  - SUBDIAPHRAGMATIC ABSCESS [None]
  - THERAPY NON-RESPONDER [None]
  - VENOUS INJURY [None]
  - VOMITING [None]
